FAERS Safety Report 8361171-8 (Version None)
Quarter: 2012Q2

REPORT INFORMATION
  Report Type: 
  Country: None (occurrence: None)
  Receive Date: 20120515
  Receipt Date: 20120501
  Transmission Date: 20120825
  Serious: Yes (Death)
  Sender: FDA-Public Use
  Company Number: US-MYLANLABS-2009S1006380

PATIENT
  Age: 44 Year
  Sex: Female
  Weight: 68.95 kg

DRUGS (11)
  1. SYNTHROID [Concomitant]
     Dosage: EXCEPT FOR MONDAY'S WHEN SHE TAKES 100UG
  2. LAMICTAL [Concomitant]
  3. PROPRANOLOL HYDROCHLORIDE [Concomitant]
  4. INDOMETHACIN [Concomitant]
  5. TEMAZEPAM [Concomitant]
  6. ESTRADIOL [Concomitant]
  7. PROMETHAZINE [Concomitant]
  8. BUTORPHANOL TARATRATE [Concomitant]
  9. FENTANYL-100 [Suspect]
     Indication: PAIN
     Dosage: CHANGED Q3D
     Route: 062
  10. OXYCODONE HCL AND ACETAMINOPHEN [Concomitant]
  11. LITHIUM CARBONATE [Concomitant]

REACTIONS (2)
  - TOXICITY TO VARIOUS AGENTS [None]
  - OVERDOSE [None]
